FAERS Safety Report 15081238 (Version 1)
Quarter: 2018Q2

REPORT INFORMATION
  Report Type: Spontaneous
  Country: US (occurrence: US)
  Receive Date: 20180628
  Receipt Date: 20180628
  Transmission Date: 20180711
  Serious: Yes (Other)
  Sender: FDA-Public Use
  Company Number: US-ACCORD-059462

PATIENT
  Age: 75 Year
  Sex: Female
  Weight: 68.04 kg

DRUGS (2)
  1. DIPHENHYDRAMINE HYDROCHLORIDE/PARACETAMOL [Concomitant]
  2. CLONAZEPAM ACCORD [Suspect]
     Active Substance: CLONAZEPAM
     Indication: SLEEP DISORDER
     Route: 048

REACTIONS (3)
  - Amnesia [Unknown]
  - Off label use [Unknown]
  - Fall [Unknown]
